FAERS Safety Report 16911316 (Version 1)
Quarter: 2019Q4

REPORT INFORMATION
  Report Type: Spontaneous
  Country: US (occurrence: US)
  Receive Date: 20190821
  Receipt Date: 20190821
  Transmission Date: 20200122
  Serious: No
  Sender: FDA-Public Use
  Company Number: None

PATIENT
  Age: 33 Year
  Sex: Male

DRUGS (1)
  1. TRUVADA [Suspect]
     Active Substance: EMTRICITABINE\TENOFOVIR DISOPROXIL FUMARATE
     Indication: HIGH RISK SEXUAL BEHAVIOUR
     Route: 048
     Dates: start: 20180928

REACTIONS (2)
  - Depression [None]
  - Malaise [None]

NARRATIVE: CASE EVENT DATE: 201907
